FAERS Safety Report 20568084 (Version 1)
Quarter: 2022Q1

REPORT INFORMATION
  Report Type: Spontaneous
  Country: IT (occurrence: IT)
  Receive Date: 20220308
  Receipt Date: 20220308
  Transmission Date: 20220423
  Serious: Yes (Other)
  Sender: FDA-Public Use
  Company Number: IT-BoehringerIngelheim-2022-BI-157619

PATIENT
  Age: 73 Year
  Sex: Female

DRUGS (1)
  1. DABIGATRAN [Suspect]
     Active Substance: DABIGATRAN
     Indication: Product used for unknown indication
     Dosage: 150-220 MG/DAY FOR 3-8 WEEKS
     Route: 048

REACTIONS (2)
  - Herpes zoster [Recovered/Resolved]
  - Haemorrhage [Recovered/Resolved]
